FAERS Safety Report 5597320-4 (Version None)
Quarter: 2008Q1

REPORT INFORMATION
  Report Type: 
  Country: None (occurrence: None)
  Receive Date: 20080121
  Receipt Date: 20080114
  Transmission Date: 20080703
  Serious: Yes (Other)
  Sender: FDA-Public Use
  Company Number: IT-JNJFOC-20080103232

PATIENT
  Age: 52 Year
  Sex: Female

DRUGS (1)
  1. CAELYX [Suspect]
     Indication: VULVAL CANCER
     Route: 042

REACTIONS (2)
  - CHOKING SENSATION [None]
  - RASH [None]
